FAERS Safety Report 22399103 (Version 2)
Quarter: 2023Q2

REPORT INFORMATION
  Report Type: Report from Study
  Country: IN (occurrence: None)
  Receive Date: 20230602
  Receipt Date: 20230619
  Transmission Date: 20230722
  Serious: Yes (Hospitalization)
  Sender: FDA-Public Use
  Company Number: IN-ROCHE-3358517

PATIENT
  Age: 55 Year
  Sex: Female
  Weight: 46.6 kg

DRUGS (15)
  1. BEVACIZUMAB [Suspect]
     Active Substance: BEVACIZUMAB
     Indication: Ovarian cancer metastatic
     Dosage: DATE OF LAST DOSE PRIOR TO ADVERSE EVENT : 04/MAY/2023
     Route: 042
     Dates: start: 20230411
  2. CARBOPLATIN [Suspect]
     Active Substance: CARBOPLATIN
     Indication: Ovarian cancer metastatic
     Dosage: STOP DATE : 04/MAY/2023
     Route: 042
     Dates: start: 20230321
  3. PACLITAXEL [Suspect]
     Active Substance: PACLITAXEL
     Indication: Ovarian cancer metastatic
     Dosage: STOP DATE : 04/MAY/2023
     Route: 042
     Dates: start: 20230321
  4. FOLIC ACID [Concomitant]
     Active Substance: FOLIC ACID
     Dosage: DOSE : 2 AMP
     Route: 042
     Dates: start: 20230525, end: 20230525
  5. LEVOFLOXACIN [Concomitant]
     Active Substance: LEVOFLOXACIN
     Route: 048
     Dates: start: 20230525, end: 20230525
  6. PANTOPRAZOLE [Concomitant]
     Active Substance: PANTOPRAZOLE
     Route: 048
     Dates: start: 20230525, end: 20230527
  7. TELMISARTAN [Concomitant]
     Active Substance: TELMISARTAN
     Route: 048
     Dates: start: 20230526, end: 20230526
  8. FERROUS ASCORBATE [Concomitant]
     Active Substance: FERROUS ASCORBATE
     Route: 048
     Dates: start: 20230526, end: 20230527
  9. CHOLECALCIFEROL [Concomitant]
     Active Substance: CHOLECALCIFEROL
     Route: 048
     Dates: start: 20230526, end: 20230527
  10. PAN D (INDIA) [Concomitant]
     Route: 048
     Dates: start: 20230525
  11. AMLO [Concomitant]
     Route: 048
     Dates: start: 20230525
  12. TELMA (INDIA) [Concomitant]
     Route: 048
     Dates: start: 20230525
  13. AMLODIPINE [Concomitant]
     Active Substance: AMLODIPINE BESYLATE
     Dates: start: 20230525, end: 20230525
  14. PANTOPRAZOLE [Concomitant]
     Active Substance: PANTOPRAZOLE
     Route: 048
     Dates: start: 20230525, end: 20230527
  15. FERROUS ASCORBATE [Concomitant]
     Active Substance: FERROUS ASCORBATE
     Route: 048
     Dates: start: 20230526, end: 20230527

REACTIONS (3)
  - Platelet count decreased [Recovered/Resolved with Sequelae]
  - Neutropenia [Recovered/Resolved with Sequelae]
  - Anaemia [Recovered/Resolved with Sequelae]

NARRATIVE: CASE EVENT DATE: 20230525
